FAERS Safety Report 25064637 (Version 1)
Quarter: 2025Q1

REPORT INFORMATION
  Report Type: Spontaneous
  Country: US (occurrence: US)
  Receive Date: 20250311
  Receipt Date: 20250311
  Transmission Date: 20250408
  Serious: No
  Sender: BRISTOL-MYERS SQUIBB COMPANY
  Company Number: US-BRISTOL-MYERS SQUIBB COMPANY-2025-036139

PATIENT
  Age: 60 Year
  Sex: Male
  Weight: 88.7 kg

DRUGS (1)
  1. REVLIMID [Suspect]
     Active Substance: LENALIDOMIDE
     Indication: Plasma cell myeloma
     Dosage: ONCE DAILY FOR 14 DAYS ON, 7 DAYS OFF
     Route: 048
     Dates: start: 2024

REACTIONS (2)
  - Pain [Unknown]
  - Off label use [Unknown]
